FAERS Safety Report 4299585-8 (Version None)
Quarter: 2004Q1

REPORT INFORMATION
  Report Type: 
  Country: None (occurrence: None)
  Receive Date: 20040217
  Receipt Date: 20040217
  Transmission Date: 20041129
  Serious: Yes (Hospitalization)
  Sender: FDA-Public Use
  Company Number: None

PATIENT
  Age: 48 Year
  Sex: Female

DRUGS (1)
  1. ADVIL [Suspect]
     Indication: DENTAL DISCOMFORT
     Dosage: 200G X 1
     Dates: start: 20040202

REACTIONS (1)
  - HYPERSENSITIVITY [None]
